FAERS Safety Report 8601539-5 (Version None)
Quarter: 2012Q3

REPORT INFORMATION
  Report Type: 
  Country: None (occurrence: None)
  Receive Date: 20120806
  Receipt Date: 20120725
  Transmission Date: 20120928
  Serious: Yes (Hospitalization, Other)
  Sender: FDA-Public Use
  Company Number: 2012-000515

PATIENT
  Age: 52 Year
  Sex: Female

DRUGS (11)
  1. CRESTOR [Concomitant]
  2. PREVACID [Concomitant]
  3. LIPITOR [Concomitant]
  4. CLOTRIMAZOLE [Concomitant]
  5. ACTONEL [Suspect]
     Indication: OSTEOPOROSIS
     Dosage: 35 MG ONCE WEEKLY, ORAL
     Route: 048
     Dates: start: 20050901, end: 20060501
  6. BONIVA [Suspect]
     Indication: OSTEOPOROSIS
     Dosage: 150 MG ONCE MONTHLY, ORAL
     Route: 048
     Dates: start: 20060601, end: 20080501
  7. FOSAMAX [Suspect]
     Indication: OSTEOPOROSIS
     Dosage: UNK, ORAL, 70 MG ONCE WEEKLY, ORAL
     Route: 048
     Dates: start: 20020101, end: 20040101
  8. FOSAMAX [Suspect]
     Indication: OSTEOPOROSIS
     Dosage: UNK, ORAL, 70 MG ONCE WEEKLY, ORAL
     Route: 048
     Dates: start: 20080701, end: 20080101
  9. PRILOSEC [Concomitant]
  10. MULTIVITAMIN /00097801/ (ASCORBIC ACID, CALCIUM PANTOTHENATE, ERGOCALC [Concomitant]
  11. NEXIUM /01479303/ (ESOMEPRAZOLE SODIUM) [Concomitant]

REACTIONS (15)
  - BONE GRAFT [None]
  - VERTEBRAL FORAMINAL STENOSIS [None]
  - PAIN IN EXTREMITY [None]
  - VITAMIN D DECREASED [None]
  - N-TELOPEPTIDE URINE DECREASED [None]
  - FRACTURE NONUNION [None]
  - BONE LESION [None]
  - BACK PAIN [None]
  - PATHOLOGICAL FRACTURE [None]
  - GASTROOESOPHAGEAL REFLUX DISEASE [None]
  - GREENSTICK FRACTURE [None]
  - FEMUR FRACTURE [None]
  - ARTHRALGIA [None]
  - LIGAMENT SPRAIN [None]
  - BURSITIS [None]
